FAERS Safety Report 9535890 (Version 1)
Quarter: 2013Q2

REPORT INFORMATION
  Report Type: Spontaneous
  Country: US (occurrence: None)
  Receive Date: 20130507
  Receipt Date: 20130507
  Transmission Date: 20140414
  Serious: Yes (Other)
  Sender: FDA-Public Use
  Company Number: PHEH2013US001493

PATIENT
  Sex: Female

DRUGS (1)
  1. AFINITOR ( RAD) UNKNOWN [Suspect]
     Indication: BREAST CANCER
     Route: 048
     Dates: start: 20121212

REACTIONS (4)
  - Dehydration [None]
  - Aphagia [None]
  - Pyrexia [None]
  - Stomatitis [None]
